FAERS Safety Report 18978677 (Version 2)
Quarter: 2021Q1

REPORT INFORMATION
  Report Type: Report from Study
  Country: None (occurrence: US)
  Receive Date: 20210308
  Receipt Date: 20210317
  Transmission Date: 20210420
  Serious: Yes (Hospitalization, Other)
  Sender: FDA-Public Use
  Company Number: US-ABBVIE-21K-163-3798060-00

PATIENT
  Sex: Female
  Weight: 86.26 kg

DRUGS (3)
  1. SYNTHROID [Suspect]
     Active Substance: LEVOTHYROXINE SODIUM
     Indication: THYROID DISORDER
     Route: 048
     Dates: start: 2018
  2. COVID?19 VACCINE [Concomitant]
     Indication: COVID-19 IMMUNISATION
     Dosage: MANUFACTURER: UNKNOWN
     Route: 030
     Dates: start: 20210125, end: 20210125
  3. SYNTHROID [Suspect]
     Active Substance: LEVOTHYROXINE SODIUM
     Route: 048
     Dates: start: 2020

REACTIONS (5)
  - Heart rate abnormal [Recovered/Resolved]
  - Dizziness [Recovering/Resolving]
  - Feeling of body temperature change [Recovering/Resolving]
  - Cardiac disorder [Recovered/Resolved]
  - COVID-19 [Recovering/Resolving]

NARRATIVE: CASE EVENT DATE: 2020
